FAERS Safety Report 8512739-7 (Version None)
Quarter: 2012Q3

REPORT INFORMATION
  Report Type: 
  Country: None (occurrence: None)
  Receive Date: 20120716
  Receipt Date: 20120708
  Transmission Date: 20120928
  Serious: Yes (Death, Life-Threatening, Disabling)
  Sender: FDA-Public Use
  Company Number: US-GILEAD-2012-0057868

PATIENT
  Sex: Female

DRUGS (1)
  1. LETAIRIS [Suspect]
     Indication: PULMONARY HYPERTENSION
     Dosage: 10 MG, UNK
     Route: 048
     Dates: start: 20120314, end: 20120708

REACTIONS (2)
  - PULMONARY HYPERTENSION [None]
  - DISEASE PROGRESSION [None]
